FAERS Safety Report 14232733 (Version 1)
Quarter: 2017Q4

REPORT INFORMATION
  Report Type: Spontaneous
  Country: US (occurrence: None)
  Receive Date: 20171128
  Receipt Date: 20171128
  Transmission Date: 20180321
  Serious: No
  Sender: FDA-Public Use
  Company Number: None

PATIENT
  Age: 76 Year
  Sex: Female

DRUGS (1)
  1. BOTOX [Suspect]
     Active Substance: ONABOTULINUMTOXINA
     Indication: FACIAL SPASM
     Dosage: 50 UNITS INTO UPPER AND LOWER LEFT EYE LID EVERY 3 MONTHS INTRAMUSCULAR
     Route: 030
     Dates: start: 20171103

REACTIONS (3)
  - Headache [None]
  - Vision blurred [None]
  - Eyelid ptosis [None]

NARRATIVE: CASE EVENT DATE: 20171104
